FAERS Safety Report 24776187 (Version 1)
Quarter: 2024Q4

REPORT INFORMATION
  Report Type: Report from Study
  Country: US (occurrence: US)
  Receive Date: 20241226
  Receipt Date: 20241226
  Transmission Date: 20250115
  Serious: Yes (Other)
  Sender: UCB
  Company Number: US-UCBSA-2024066398

PATIENT

DRUGS (2)
  1. LEVETIRACETAM [Suspect]
     Active Substance: LEVETIRACETAM
     Indication: Seizure prophylaxis
     Dosage: 1000 MILLIGRAM, ONCE DAILY (QD)
  2. LEVETIRACETAM [Suspect]
     Active Substance: LEVETIRACETAM
     Indication: Off label use

REACTIONS (7)
  - Seizure [Unknown]
  - Affective disorder [Unknown]
  - Anxiety [Unknown]
  - Mania [Unknown]
  - Asthenia [Unknown]
  - Gait disturbance [Unknown]
  - Off label use [Unknown]
